FAERS Safety Report 17841639 (Version 5)
Quarter: 2021Q1

REPORT INFORMATION
  Report Type: Report from Study
  Country: GB (occurrence: GB)
  Receive Date: 20200529
  Receipt Date: 20210216
  Transmission Date: 20210419
  Serious: Yes (Other)
  Sender: FDA-Public Use
  Company Number: GB-SAMSUNG BIOEPIS-SB-2020-17999

PATIENT
  Sex: Female

DRUGS (2)
  1. AMITRIPTYLINE [Suspect]
     Active Substance: AMITRIPTYLINE
     Indication: PRODUCT USED FOR UNKNOWN INDICATION
     Dosage: UNKNOWN
     Route: 065
  2. IMRALDI [Suspect]
     Active Substance: ADALIMUMAB
     Indication: ARTHRITIS
     Route: 058

REACTIONS (16)
  - Fatigue [Unknown]
  - Malaise [Unknown]
  - Weight decreased [Unknown]
  - Sleep disorder [Unknown]
  - Arthralgia [Unknown]
  - Stress [Unknown]
  - Product use in unapproved indication [Unknown]
  - Hypothyroidism [Unknown]
  - Depressed mood [Unknown]
  - Pain [Unknown]
  - Fibromyalgia [Unknown]
  - Rheumatoid arthritis [Unknown]
  - Anxiety [Unknown]
  - Pain in extremity [Unknown]
  - Somnolence [Unknown]
  - Decreased appetite [Unknown]
